FAERS Safety Report 9492116 (Version 1)
Quarter: 2013Q3

REPORT INFORMATION
  Report Type: Spontaneous
  Country: PR (occurrence: PR)
  Receive Date: 20130830
  Receipt Date: 20130830
  Transmission Date: 20140515
  Serious: Yes (Other)
  Sender: FDA-Public Use
  Company Number: PR-TEVA-429045USA

PATIENT
  Sex: Male

DRUGS (1)
  1. FUROSEMIDE [Suspect]

REACTIONS (3)
  - Cardiac failure congestive [Unknown]
  - Local swelling [Unknown]
  - Genital swelling [Unknown]
